FAERS Safety Report 20229144 (Version 1)
Quarter: 2021Q4

REPORT INFORMATION
  Report Type: Spontaneous
  Country: FR (occurrence: FR)
  Receive Date: 20211225
  Receipt Date: 20211225
  Transmission Date: 20220303
  Serious: Yes (Hospitalization, Other)
  Sender: FDA-Public Use
  Company Number: FR-ALKEM LABORATORIES LIMITED-FR-ALKEM-2021-01505

PATIENT
  Age: 3 Year
  Sex: Female

DRUGS (5)
  1. MYCOPHENOLATE MOFETIL [Suspect]
     Active Substance: MYCOPHENOLATE MOFETIL
     Indication: Still^s disease
     Dosage: UNK
     Route: 065
  2. PREDNISOLONE [Suspect]
     Active Substance: PREDNISOLONE
     Indication: Still^s disease
     Dosage: 2 MILLIGRAM/KILOGRAM, QD
     Route: 065
  3. PREDNISOLONE [Suspect]
     Active Substance: PREDNISOLONE
     Dosage: 1 MILLIGRAM/KILOGRAM, QD
     Route: 065
  4. Methotrexate/tocilizumab [Concomitant]
     Indication: Still^s disease
  5. Anakinra/Canakinumab/Adalimumab [Concomitant]
     Indication: Still^s disease

REACTIONS (7)
  - Infection [Recovered/Resolved]
  - Actinomycotic sepsis [Recovered/Resolved]
  - Herpes zoster [Recovered/Resolved]
  - Varicella zoster virus infection [Recovered/Resolved]
  - Cellulitis staphylococcal [Recovered/Resolved]
  - Graft versus host disease in skin [Recovered/Resolved]
  - Graft versus host disease in gastrointestinal tract [Recovered/Resolved]
